FAERS Safety Report 8784606 (Version 2)
Quarter: 2012Q4

REPORT INFORMATION
  Report Type: Spontaneous
  Country: GB (occurrence: None)
  Receive Date: 20120830
  Receipt Date: 20120907
  Transmission Date: 20130627
  Serious: Yes (Life-Threatening, Hospitalization)
  Sender: FDA-Public Use
  Company Number: MC201200528

PATIENT
  Sex: Male

DRUGS (3)
  1. ANGIOMAX [Suspect]
     Indication: PERCUTANEOUS CORONARY INTERVENTION
     Dosage: 1.75 mg/kg/hr infusion asap after bolus, Intravenous
     Route: 042
     Dates: start: 20120820, end: 20120820
  2. CLOPIDOGREL [Concomitant]
  3. ASA [Concomitant]

REACTIONS (2)
  - Myocardial infarction [None]
  - Thrombosis in device [None]
